FAERS Safety Report 5679126-0 (Version None)
Quarter: 2008Q1

REPORT INFORMATION
  Report Type: 
  Country: None (occurrence: None)
  Receive Date: 20080325
  Receipt Date: 20080321
  Transmission Date: 20080703
  Serious: Yes (Death)
  Sender: FDA-Public Use
  Company Number: US-MERCK-0803USA03575

PATIENT
  Age: 86 Year
  Sex: Male

DRUGS (8)
  1. JANUVIA [Suspect]
     Indication: TYPE 2 DIABETES MELLITUS
     Route: 048
     Dates: start: 20070501, end: 20080317
  2. POTASSIUM CHLORIDE [Concomitant]
     Route: 065
  3. NIFEDIAC [Concomitant]
     Route: 065
  4. GLYBURIDE [Concomitant]
     Route: 065
  5. SULINDAC [Concomitant]
     Route: 065
  6. GLYCOLAX [Concomitant]
     Route: 065
  7. AMOXICILLIN [Concomitant]
     Route: 065
  8. POLYETHYLENE GLYCOL [Concomitant]
     Route: 065

REACTIONS (1)
  - DEATH [None]
